FAERS Safety Report 5169558-1 (Version None)
Quarter: 2006Q4

REPORT INFORMATION
  Report Type: 
  Country: None (occurrence: None)
  Receive Date: 20061204
  Receipt Date: 20061130
  Transmission Date: 20070319
  Serious: Yes (Other)
  Sender: FDA-Public Use
  Company Number: 231001

PATIENT
  Age: 46 Year
  Sex: Female

DRUGS (9)
  1. XOLAIR [Suspect]
     Indication: ASTHMA
     Dosage: 300 MG, 1/MONTH
     Dates: start: 20030101
  2. ADVAIR DISKUS 100/50 [Concomitant]
  3. ALBUTEROL (ALBUTEROL/ALBUTEROL SULFATE) [Concomitant]
  4. SINGULAIR [Concomitant]
  5. PREVACID [Concomitant]
  6. ALLERGY SHOTS (ALLERGENIC EXTRACTS) [Concomitant]
  7. MICROGESTIN (ETHINYL ESTRADIOL, NORETHINDRONE) [Concomitant]
  8. PREDNISONE TAB [Concomitant]
  9. FLONASE [Concomitant]

REACTIONS (2)
  - DIAPHRAGMATIC DISORDER [None]
  - MYASTHENIA GRAVIS [None]
